FAERS Safety Report 20404301 (Version 1)
Quarter: 2022Q1

REPORT INFORMATION
  Report Type: Report from Study
  Country: DO (occurrence: DO)
  Receive Date: 20220131
  Receipt Date: 20220131
  Transmission Date: 20220423
  Serious: Yes (Other)
  Sender: FDA-Public Use
  Company Number: DO-ABBVIE-21K-279-3976651-00

PATIENT
  Sex: Female
  Weight: 59 kg

DRUGS (4)
  1. HUMIRA [Suspect]
     Active Substance: ADALIMUMAB
     Indication: Rheumatoid arthritis
     Route: 058
     Dates: start: 20210623, end: 20211109
  2. METHOTREXATE [Concomitant]
     Active Substance: METHOTREXATE
     Indication: Rheumatoid arthritis
     Dates: start: 202105
  3. METHOTREXATE [Concomitant]
     Active Substance: METHOTREXATE
     Route: 050
     Dates: start: 2021
  4. BRONAL [Concomitant]
     Indication: Product used for unknown indication
     Dates: start: 2021

REACTIONS (11)
  - Vision blurred [Not Recovered/Not Resolved]
  - Feeling abnormal [Recovered/Resolved]
  - Eye irritation [Not Recovered/Not Resolved]
  - Injection site erythema [Recovering/Resolving]
  - Injection site pruritus [Recovering/Resolving]
  - Headache [Recovered/Resolved]
  - Injection site discomfort [Recovered/Resolved]
  - Dermatitis allergic [Recovering/Resolving]
  - Injection site hypersensitivity [Recovering/Resolving]
  - Visual impairment [Unknown]
  - Ocular hyperaemia [Not Recovered/Not Resolved]

NARRATIVE: CASE EVENT DATE: 20210101
